FAERS Safety Report 9300651 (Version 1)
Quarter: 2013Q2

REPORT INFORMATION
  Report Type: Spontaneous
  Country: CA (occurrence: CA)
  Receive Date: 20130521
  Receipt Date: 20130521
  Transmission Date: 20140414
  Serious: Yes (Other)
  Sender: FDA-Public Use
  Company Number: CA-BAYER-2013-061637

PATIENT
  Sex: Female

DRUGS (1)
  1. MIRENA [Suspect]
     Dosage: UNK
     Dates: start: 2010

REACTIONS (7)
  - Abdominal pain [None]
  - Pain [None]
  - Abdominal distension [None]
  - Abdominal discomfort [None]
  - Feeling abnormal [None]
  - Pelvic fluid collection [None]
  - Device dislocation [None]
